FAERS Safety Report 5025194-9 (Version None)
Quarter: 2006Q2

REPORT INFORMATION
  Report Type: 
  Country: None (occurrence: None)
  Receive Date: 20060613
  Receipt Date: 20060526
  Transmission Date: 20061013
  Serious: Yes (Death)
  Sender: FDA-Public Use
  Company Number: 2006JP001491

PATIENT
  Age: 81 Year
  Sex: Male

DRUGS (15)
  1. CEFAZOLIN [Suspect]
     Indication: PREOPERATIVE CARE
     Dosage: 1G TWICE PER DAY
     Route: 042
     Dates: start: 20060517, end: 20060520
  2. MINOCYCLINE HCL [Suspect]
     Indication: BRONCHITIS
     Dosage: 100MG TWICE PER DAY
     Route: 042
     Dates: start: 20060513, end: 20060516
  3. CARBOHYDRATE [Concomitant]
  4. AMINO ACID INJ [Concomitant]
  5. ELECTROLYTES [Concomitant]
  6. PHENYTOIN [Concomitant]
  7. GAMOFA [Concomitant]
  8. NICHOLIN [Concomitant]
     Indication: CEREBRAL INFARCTION
     Dosage: 1000MG PER DAY
     Route: 065
     Dates: start: 20060409, end: 20060422
  9. RADICUT [Concomitant]
     Dates: start: 20060409, end: 20060422
  10. GLYCEROL 2.6% [Concomitant]
     Route: 065
     Dates: start: 20060412, end: 20060422
  11. FLUMARIN [Concomitant]
     Dosage: 2G PER DAY
     Dates: start: 20060412, end: 20060418
  12. CEFMETAZON [Concomitant]
     Dosage: 2G PER DAY
     Dates: start: 20060419, end: 20060421
  13. BROACT [Concomitant]
     Dosage: 2G PER DAY
     Dates: start: 20060421, end: 20060429
  14. PANSPORIN [Concomitant]
     Dates: start: 20060430, end: 20060505
  15. PENTCILLIN [Concomitant]
     Dosage: 4G PER DAY
     Dates: start: 20060506, end: 20060512

REACTIONS (4)
  - HYPERKALAEMIA [None]
  - PYREXIA [None]
  - RENAL FAILURE ACUTE [None]
  - URINE OUTPUT DECREASED [None]
